FAERS Safety Report 9611205 (Version 2)
Quarter: 2013Q4

REPORT INFORMATION
  Report Type: Report from Study
  Country: SE (occurrence: SE)
  Receive Date: 20131009
  Receipt Date: 20131016
  Transmission Date: 20140711
  Serious: Yes (Hospitalization)
  Sender: FDA-Public Use
  Company Number: SE-ROCHE-1284582

PATIENT
  Age: 39 Year
  Sex: Female
  Weight: 81.5 kg

DRUGS (1)
  1. TRASTUZUMAB EMTANSINE [Suspect]
     Indication: BREAST CANCER METASTATIC
     Dosage: LAST DOSE PRIOR TO SAE: 27/SEP/2013.
     Route: 042
     Dates: start: 20130218

REACTIONS (1)
  - Gastritis [Recovered/Resolved]
